FAERS Safety Report 17217763 (Version 2)
Quarter: 2022Q1

REPORT INFORMATION
  Report Type: Report from Study
  Country: NL (occurrence: None)
  Receive Date: 20191231
  Receipt Date: 20220303
  Transmission Date: 20220423
  Serious: Yes (Death, Hospitalization)
  Sender: FDA-Public Use
  Company Number: NL-ROCHE-2511582

PATIENT
  Age: 52 Year

DRUGS (2)
  1. PACLITAXEL [Suspect]
     Active Substance: PACLITAXEL
     Indication: Triple negative breast cancer
     Dosage: ON 17/DEC/2019, THE PATIENT RECEIVED MOST CURRENT TREATMENT ADMINISTRATION OF PACLITAXEL (168 MG).
     Route: 042
     Dates: start: 20191210
  2. ATEZOLIZUMAB [Suspect]
     Active Substance: ATEZOLIZUMAB
     Indication: Triple negative breast cancer
     Dosage: ON 17/DEC/2019, THE PATIENT RECEIVED MOST CURRENT TREATMENT ADMINISTRATION OF ATEZOLIZUMAB.
     Route: 041
     Dates: start: 20191210

REACTIONS (2)
  - Cerebrovascular accident [Not Recovered/Not Resolved]
  - Cerebral infarction [Fatal]

NARRATIVE: CASE EVENT DATE: 20191223
